FAERS Safety Report 21642833 (Version 1)
Quarter: 2022Q4

REPORT INFORMATION
  Report Type: Spontaneous
  Country: JP (occurrence: JP)
  Receive Date: 20221125
  Receipt Date: 20221125
  Transmission Date: 20230113
  Serious: Yes (Other)
  Sender: FDA-Public Use
  Company Number: JP-TEVA-2022-JP-2070574

PATIENT
  Age: 8 Decade
  Sex: Male

DRUGS (3)
  1. AZILECT [Suspect]
     Active Substance: RASAGILINE MESYLATE
     Indication: Parkinson^s disease
     Dosage: 1 MILLIGRAM DAILY;
     Route: 048
     Dates: start: 20220818, end: 20220822
  2. LEVODOPA [Concomitant]
     Active Substance: LEVODOPA
     Indication: Product used for unknown indication
     Route: 065
     Dates: start: 202207
  3. ZONISAMIDE [Concomitant]
     Active Substance: ZONISAMIDE
     Indication: Product used for unknown indication
     Route: 065
     Dates: start: 20220818

REACTIONS (6)
  - Dementia [Unknown]
  - Delusion [Recovered/Resolved]
  - Impulse-control disorder [Recovered/Resolved]
  - Hypersexuality [Recovered/Resolved]
  - Disease progression [Unknown]
  - Disorientation [Unknown]

NARRATIVE: CASE EVENT DATE: 20220822
